FAERS Safety Report 18823142 (Version 1)
Quarter: 2021Q1

REPORT INFORMATION
  Report Type: Other
  Country: US (occurrence: US)
  Receive Date: 20210202
  Receipt Date: 20210202
  Transmission Date: 20210419
  Serious: Yes (Hospitalization)
  Sender: FDA-Public Use
  Company Number: US-B.BRAUN MEDICAL INC.-2106183

PATIENT
  Age: 64 Year
  Sex: Female

DRUGS (4)
  1. FUROSEMIDE. [Concomitant]
     Active Substance: FUROSEMIDE
     Route: 042
  2. SODIUM CHLORIDE INJECTION USP 0264?7800?09 [Suspect]
     Active Substance: SODIUM CHLORIDE
     Route: 042
  3. PARENTERAL NUTRITION WITH SODIUM [Concomitant]
  4. VASOPRESSIN. [Concomitant]
     Active Substance: VASOPRESSIN
     Route: 042

REACTIONS (1)
  - Drug ineffective [None]
